FAERS Safety Report 14334685 (Version 2)
Quarter: 2018Q1

REPORT INFORMATION
  Report Type: Report from Study
  Country: CA (occurrence: CA)
  Receive Date: 20171228
  Receipt Date: 20180301
  Transmission Date: 20180509
  Serious: Yes (Hospitalization)
  Sender: FDA-Public Use
  Company Number: CA-HLSUS-2017-CA-001301

PATIENT
  Age: 40 Year
  Sex: Male

DRUGS (3)
  1. CYMBALTA [Concomitant]
     Active Substance: DULOXETINE HYDROCHLORIDE
     Dosage: 90 MG
     Route: 048
  2. CLONAZEPAM. [Concomitant]
     Active Substance: CLONAZEPAM
     Dosage: 1 MG TWICE DAILY
     Route: 048
  3. CLOZARIL [Suspect]
     Active Substance: CLOZAPINE
     Indication: PSYCHOTIC DISORDER
     Dosage: 225 MG
     Route: 048
     Dates: start: 20170315, end: 20171220

REACTIONS (4)
  - Alcohol poisoning [Unknown]
  - Pneumonia aspiration [Unknown]
  - Asphyxia [Unknown]
  - Brain injury [Recovered/Resolved with Sequelae]

NARRATIVE: CASE EVENT DATE: 20170803
